FAERS Safety Report 6464535-2 (Version None)
Quarter: 2009Q4

REPORT INFORMATION
  Report Type: 
  Country: None (occurrence: None)
  Receive Date: 20091201
  Receipt Date: 20091119
  Transmission Date: 20100525
  Serious: Yes (Death, Other)
  Sender: FDA-Public Use
  Company Number: JP-PFIZER INC-2009297479

PATIENT
  Age: 56 Year
  Sex: Female
  Weight: 37 kg

DRUGS (1)
  1. CAMPTOSAR [Suspect]
     Indication: CERVIX CARCINOMA
     Dosage: 82 MG/M2, 100 MG
     Route: 041
     Dates: start: 20090909, end: 20090923

REACTIONS (5)
  - ABDOMINAL PAIN [None]
  - DIARRHOEA [None]
  - GASTROINTESTINAL HAEMORRHAGE [None]
  - HAEMOGLOBIN DECREASED [None]
  - INTERSTITIAL LUNG DISEASE [None]
